FAERS Safety Report 4780361-4 (Version None)
Quarter: 2005Q3

REPORT INFORMATION
  Report Type: 
  Country: None (occurrence: None)
  Receive Date: 20050926
  Receipt Date: 20050926
  Transmission Date: 20060218
  Serious: Yes (Hospitalization)
  Sender: FDA-Public Use
  Company Number: None

PATIENT
  Age: 88 Year
  Sex: Female
  Weight: 72.5755 kg

DRUGS (14)
  1. PAMIDRONATE DISODIUM [Suspect]
     Indication: METASTASES TO BONE
     Dosage: 90 MG IV X 1 DOSE
     Route: 042
     Dates: start: 20050730
  2. PAMIDRONATE DISODIUM [Suspect]
     Indication: OSTEOLYSIS
     Dosage: 90 MG IV X 1 DOSE
     Route: 042
     Dates: start: 20050730
  3. ASPIRIN [Concomitant]
  4. KLONOPIN [Concomitant]
  5. FEMARA [Concomitant]
  6. HYDROCHLOROTHIAZIDE [Concomitant]
  7. PREVACID [Concomitant]
  8. CELEBREX [Concomitant]
  9. ZOLOFT [Concomitant]
  10. MOM [Concomitant]
  11. LORTAB [Concomitant]
  12. AMBIEN [Concomitant]
  13. ALBUTEROL [Concomitant]
  14. SORBITOL [Concomitant]

REACTIONS (3)
  - HEADACHE [None]
  - PAPILLOEDEMA [None]
  - VISION BLURRED [None]
